FAERS Safety Report 10627266 (Version 4)
Quarter: 2016Q2

REPORT INFORMATION
  Report Type: Report from Study
  Country: DE (occurrence: DE)
  Receive Date: 20141204
  Receipt Date: 20160610
  Transmission Date: 20160815
  Serious: Yes (Hospitalization, Other)
  Sender: FDA-Public Use
  Company Number: DE-GILEAD-2014-0124957

PATIENT
  Age: 51 Year
  Sex: Male
  Weight: 76 kg

DRUGS (19)
  1. ACTRAPHANE [Concomitant]
     Active Substance: INSULIN HUMAN
     Dosage: 8 IU, QD
     Route: 058
  2. IBUPROFEN. [Concomitant]
     Active Substance: IBUPROFEN
     Indication: ARTHRALGIA
     Dosage: 400 MG, UNK
     Dates: start: 20140218
  3. METFORMIN [Concomitant]
     Active Substance: METFORMIN HYDROCHLORIDE
     Dosage: 1000 MG, BID
     Dates: start: 20140417
  4. ATARAX [Concomitant]
     Active Substance: HYDROXYZINE\HYDROXYZINE HYDROCHLORIDE
     Dosage: 25 MG, UNK
     Dates: start: 20140509
  5. LORATADIN [Concomitant]
     Active Substance: LORATADINE
     Indication: PRURITUS
     Dosage: UNK, QD
     Dates: start: 20140417
  6. ZOPICLON [Concomitant]
     Active Substance: ZOPICLONE
     Indication: INSOMNIA
     Dosage: 7.5 MG, UNK
     Route: 065
     Dates: start: 20140509
  7. VISCO VISION [Concomitant]
     Dosage: UNK
     Dates: start: 20140522
  8. NOVAMINSULFON [Concomitant]
     Active Substance: METAMIZOLE
     Dosage: 30 DF, BID
     Dates: start: 20140530
  9. RIBAVIRIN. [Suspect]
     Active Substance: RIBAVIRIN
     Dosage: 1200 MG, QD
     Route: 048
     Dates: start: 20140222, end: 20140423
  10. ACTRAPID [Concomitant]
     Active Substance: INSULIN HUMAN
     Dosage: 50 IU, QD
  11. MUCOSOLVAN [Concomitant]
     Active Substance: AMBROXOL HYDROCHLORIDE
  12. RIBAVIRIN. [Suspect]
     Active Substance: RIBAVIRIN
     Indication: CHRONIC HEPATITIS C
     Dosage: 800 MG, QD
     Route: 048
     Dates: start: 20140423, end: 20140516
  13. PANTOPRAZOL [Concomitant]
     Active Substance: PANTOPRAZOLE SODIUM
     Dosage: 20 MG, UNK
     Dates: start: 20140217
  14. BISOPROLOL RATIOPHARM [Concomitant]
     Active Substance: BISOPROLOL
     Dosage: 5 MG, UNK
     Dates: start: 20061101
  15. IBUPROFEN. [Concomitant]
     Active Substance: IBUPROFEN
     Indication: MYALGIA
  16. SOFOSBUVIR [Suspect]
     Active Substance: SOFOSBUVIR
     Indication: CHRONIC HEPATITIS C
     Dosage: 400 MG, QD
     Route: 048
     Dates: start: 20140222, end: 20140516
  17. PEGASYS [Suspect]
     Active Substance: PEGINTERFERON ALFA-2A
     Indication: CHRONIC HEPATITIS C
     Dosage: 180 ?G, Q1WK
     Route: 058
     Dates: start: 20140222, end: 20140516
  18. VIDISEPT                           /06838601/ [Concomitant]
     Dosage: UNK
     Dates: start: 20140522
  19. OMEPRAZOL RATIOPHARM [Concomitant]
     Dosage: 40 MG, UNK
     Dates: start: 20140530

REACTIONS (16)
  - Burning sensation [Recovered/Resolved]
  - Fatigue [Recovered/Resolved]
  - Gingival swelling [Recovered/Resolved]
  - Hypoaesthesia oral [Recovered/Resolved]
  - Facial paresis [Recovered/Resolved]
  - Hypoacusis [Recovered/Resolved]
  - Arthralgia [Recovered/Resolved]
  - Anaemia [Recovered/Resolved]
  - Insomnia [Recovered/Resolved]
  - Pruritus [Recovered/Resolved]
  - Ear discomfort [Recovered/Resolved]
  - Retinal detachment [Recovered/Resolved]
  - Ear congestion [Recovered/Resolved]
  - Headache [Recovered/Resolved]
  - Skin disorder [Recovered/Resolved]
  - Myalgia [Recovered/Resolved]

NARRATIVE: CASE EVENT DATE: 20140222
